FAERS Safety Report 25148720 (Version 3)
Quarter: 2025Q2

REPORT INFORMATION
  Report Type: Report from Study
  Country: US (occurrence: US)
  Receive Date: 20250402
  Receipt Date: 20250528
  Transmission Date: 20250716
  Serious: Yes (Hospitalization, Other)
  Sender: ALEXION PHARMACEUTICALS
  Company Number: US-AstraZeneca-CH-00837933AP

PATIENT
  Age: 57 Year

DRUGS (1)
  1. FASENRA [Suspect]
     Active Substance: BENRALIZUMAB
     Route: 065

REACTIONS (17)
  - Drug dose omission by device [Unknown]
  - Fall [Recovering/Resolving]
  - Thrombosis [Unknown]
  - Renal cancer [Unknown]
  - Product dose omission issue [Unknown]
  - Skin exfoliation [Recovering/Resolving]
  - Hepatic cancer [Unknown]
  - Dysstasia [Unknown]
  - Gastrointestinal disorder [Unknown]
  - Muscle disorder [Recovering/Resolving]
  - Pharyngeal disorder [Unknown]
  - Gait disturbance [Recovering/Resolving]
  - Application site haemorrhage [Unknown]
  - Administration site bruise [Unknown]
  - Breast cyst [Unknown]
  - Oesophageal disorder [Unknown]
  - Device leakage [Unknown]
